FAERS Safety Report 4507060-8 (Version None)
Quarter: 2004Q4

REPORT INFORMATION
  Report Type: 
  Country: None (occurrence: None)
  Receive Date: 20041117
  Receipt Date: 20041102
  Transmission Date: 20050328
  Serious: Yes (Hospitalization)
  Sender: FDA-Public Use
  Company Number: 2004-0007346

PATIENT
  Age: 58 Year
  Sex: Male

DRUGS (4)
  1. VIREAD [Suspect]
     Indication: HIV INFECTION
     Dosage: 300 MG, 1 IN 1 D, ORAL
     Route: 048
     Dates: start: 20030116
  2. KALETRA [Suspect]
     Indication: HIV INFECTION
     Dosage: 6 DOSAGE FORMS, 1 IN 1 D, ORAL
     Route: 048
     Dates: start: 20030116
  3. VIRAMUNE [Suspect]
     Dosage: 400 MG, 1 IN 1 D, ORAL
     Route: 048
     Dates: start: 20000801
  4. VALACYCLOVIR HCL [Concomitant]

REACTIONS (2)
  - ARTHRALGIA [None]
  - OSTEONECROSIS [None]
